FAERS Safety Report 12204425 (Version 1)
Quarter: 2016Q1

REPORT INFORMATION
  Report Type: Spontaneous
  Country: GB (occurrence: GB)
  Receive Date: 20160323
  Receipt Date: 20160323
  Transmission Date: 20160526
  Serious: Yes (Other)
  Sender: FDA-Public Use
  Company Number: GB-009507513-1603GBR009809

PATIENT
  Age: 28 Year
  Sex: Female

DRUGS (2)
  1. NEXPLANON [Suspect]
     Active Substance: ETONOGESTREL
     Indication: CONTRACEPTION
     Dosage: 68 MG
     Route: 058
     Dates: start: 20140117, end: 20160308
  2. SERTRALINE HYDROCHLORIDE. [Concomitant]
     Active Substance: SERTRALINE HYDROCHLORIDE

REACTIONS (2)
  - Headache [Unknown]
  - Papilloedema [Unknown]

NARRATIVE: CASE EVENT DATE: 20160307
